FAERS Safety Report 7712515-9 (Version None)
Quarter: 2011Q3

REPORT INFORMATION
  Report Type: 
  Country: None (occurrence: None)
  Receive Date: 20110826
  Receipt Date: 20110817
  Transmission Date: 20111222
  Serious: Yes (Hospitalization, Other)
  Sender: FDA-Public Use
  Company Number: US-US-EMD SERONO, INC.-7076026

PATIENT
  Sex: Female

DRUGS (3)
  1. REBIF [Suspect]
  2. REBIF [Suspect]
     Indication: MULTIPLE SCLEROSIS
     Dates: start: 20030818, end: 20110601
  3. REBIF [Suspect]
     Route: 058
     Dates: start: 20110707

REACTIONS (2)
  - DIVERTICULITIS [None]
  - MYOPIA [None]
